FAERS Safety Report 13981443 (Version 1)
Quarter: 2017Q3

REPORT INFORMATION
  Report Type: Spontaneous
  Country: US (occurrence: US)
  Receive Date: 20170916
  Receipt Date: 20170916
  Transmission Date: 20171128
  Serious: Yes (Other)
  Sender: FDA-Public Use
  Company Number: None

PATIENT
  Age: 67 Year
  Sex: Female
  Weight: 90 kg

DRUGS (12)
  1. VSL #3 [Concomitant]
  2. TOPAMAX [Concomitant]
     Active Substance: TOPIRAMATE
  3. BENTYL [Concomitant]
     Active Substance: DICYCLOMINE HYDROCHLORIDE
  4. VITAMIN C [Concomitant]
     Active Substance: ASCORBIC ACID
  5. ACT DRY MOUTH LOZENGES [Suspect]
     Active Substance: XYLITOL
     Indication: DRY MOUTH
     Dosage: ?          QUANTITY:36 LOZENGE;?
     Route: 048
  6. VITAMIN B12 [Concomitant]
     Active Substance: CYANOCOBALAMIN
  7. TAMOXFEN [Concomitant]
  8. BACLOFEN. [Concomitant]
     Active Substance: BACLOFEN
  9. VITAMIN D [Concomitant]
     Active Substance: CHOLECALCIFEROL
  10. BAYER 81 [Concomitant]
  11. VITAMIN E [Concomitant]
     Active Substance: .ALPHA.-TOCOPHEROL
  12. CALCIUM COQ12 [Concomitant]

REACTIONS (10)
  - Pyrexia [None]
  - Food poisoning [None]
  - Dysgeusia [None]
  - Chills [None]
  - Oral disorder [None]
  - Product tampering [None]
  - Dizziness [None]
  - Syncope [None]
  - Vomiting [None]
  - Foaming at mouth [None]

NARRATIVE: CASE EVENT DATE: 20170813
